FAERS Safety Report 7118789-X (Version None)
Quarter: 2010Q4

REPORT INFORMATION
  Report Type: 
  Country: None (occurrence: None)
  Receive Date: 20101027
  Receipt Date: 20100608
  Transmission Date: 20110411
  Serious: Yes (Other)
  Sender: FDA-Public Use
  Company Number: US-WYE-H15748210

PATIENT
  Age: 76 Year
  Sex: Female
  Weight: 59.02 kg

DRUGS (6)
  1. PREMARIN [Suspect]
     Dosage: 0.625% TWICE A WEEK, VAGINAL
     Route: 067
     Dates: start: 20100528
  2. LASIX [Concomitant]
  3. POTASSIUM CHLORIDE [Concomitant]
  4. LIPITOR [Concomitant]
  5. SYNTHROID [Concomitant]
  6. ASPIRIN [Concomitant]

REACTIONS (1)
  - MEDICATION RESIDUE [None]
